FAERS Safety Report 5129489-X (Version None)
Quarter: 2006Q4

REPORT INFORMATION
  Report Type: 
  Country: None (occurrence: None)
  Receive Date: 20061012
  Receipt Date: 20060926
  Transmission Date: 20070319
  Serious: Yes (Hospitalization)
  Sender: FDA-Public Use
  Company Number: DSA_28768_2006

PATIENT
  Age: 75 Year
  Sex: Female
  Weight: 60.3284 kg

DRUGS (10)
  1. ISORBIDE [Suspect]
     Indication: CORONARY ARTERY DISEASE
     Dosage: 20 MG TID PO
     Route: 048
     Dates: start: 20060518
  2. NATRECOR VS PLACEBO (BLINDED STUDY DRUG) [Suspect]
     Indication: CARDIAC FAILURE
     Dosage: VAR QWK IV
     Route: 042
     Dates: start: 20060530
  3. NATRECOR VS PLACEBO (BLINDED STUDY DRUG) [Suspect]
     Indication: CARDIAC FAILURE
     Dosage: VAR QWK IV
     Route: 042
     Dates: start: 20060530
  4. COREG [Suspect]
     Indication: CARDIAC FAILURE CONGESTIVE
     Dosage: 6.25 MG BID PO
     Route: 048
     Dates: start: 20060518
  5. SPIRONOLACTONE [Suspect]
     Indication: CARDIAC FAILURE CONGESTIVE
     Dosage: 25 MG Q DAY PO
     Route: 048
     Dates: start: 20060523
  6. BUMEX [Suspect]
     Indication: CARDIAC FAILURE CONGESTIVE
     Dosage: 2 MG Q DAY PO
     Route: 048
     Dates: start: 20060615
  7. DIGITEK [Suspect]
     Indication: CARDIAC FAILURE CONGESTIVE
     Dosage: 0.125 MG Q DAY PO
     Route: 048
     Dates: start: 20060627
  8. ASPIRIN [Suspect]
     Indication: CORONARY ARTERY DISEASE
     Dosage: 325 MG Q DAY PO
     Route: 048
     Dates: start: 20060501
  9. HYDRALAZINE HCL [Concomitant]
  10. LIPITOR [Concomitant]

REACTIONS (6)
  - ATRIAL NATRIURETIC PEPTIDE INCREASED [None]
  - BLOOD CHLORIDE DECREASED [None]
  - BLOOD SODIUM DECREASED [None]
  - BLOOD UREA INCREASED [None]
  - CARDIAC FAILURE ACUTE [None]
  - CARDIAC FAILURE CONGESTIVE [None]
